FAERS Safety Report 21475810 (Version 1)
Quarter: 2022Q4

REPORT INFORMATION
  Report Type: Spontaneous
  Country: DE (occurrence: DE)
  Receive Date: 20221019
  Receipt Date: 20221019
  Transmission Date: 20230112
  Serious: Yes (Hospitalization, Other)
  Sender: FDA-Public Use
  Company Number: DE-SA-SAC20221012001962

PATIENT
  Age: 24 Year
  Sex: Female

DRUGS (6)
  1. CABLIVI [Suspect]
     Active Substance: CAPLACIZUMAB-YHDP
     Indication: Thrombotic thrombocytopenic purpura
     Dosage: 10 MG, QD
     Route: 058
  2. RITUXIMAB [Concomitant]
     Active Substance: RITUXIMAB
     Indication: Immunosuppression
     Dosage: UNK
  3. PREDNISOLONE [Concomitant]
     Active Substance: PREDNISOLONE
     Dosage: 50 MG, QD
  4. CANDESARTAN [Concomitant]
     Active Substance: CANDESARTAN
     Dosage: 0-0.5-1, BID
  5. PANTOZOL [Concomitant]
     Active Substance: PANTOPRAZOLE SODIUM
     Dosage: UNK UNK, QD
  6. AMLODIPINE [Concomitant]
     Active Substance: AMLODIPINE BESYLATE
     Dosage: UNK UNK, QD

REACTIONS (4)
  - Thrombotic thrombocytopenic purpura [Recovered/Resolved]
  - Condition aggravated [Recovered/Resolved]
  - Incorrect product administration duration [Recovered/Resolved]
  - ADAMTS13 activity decreased [Recovered/Resolved]
